FAERS Safety Report 4819147-0 (Version None)
Quarter: 2005Q4

REPORT INFORMATION
  Report Type: 
  Country: None (occurrence: None)
  Receive Date: 20051012
  Receipt Date: 20050822
  Transmission Date: 20060501
  Serious: No
  Sender: FDA-Public Use
  Company Number: A03200502631

PATIENT
  Age: 48 Year
  Sex: Male
  Weight: 77.1115 kg

DRUGS (1)
  1. UROXATRAL [Suspect]
     Indication: PROSTATE EXAMINATION ABNORMAL
     Dosage: 10 MG OD - ORAL
     Route: 048
     Dates: start: 20050810, end: 20050814

REACTIONS (4)
  - EYE IRRITATION [None]
  - EYE PRURITUS [None]
  - LACRIMATION INCREASED [None]
  - VISION BLURRED [None]
